FAERS Safety Report 5866240-X (Version None)
Quarter: 2008Q3

REPORT INFORMATION
  Report Type: 
  Country: None (occurrence: None)
  Receive Date: 20080829
  Receipt Date: 20080821
  Transmission Date: 20090109
  Serious: Yes (Other)
  Sender: FDA-Public Use
  Company Number: US-PFIZER INC-2008070356

PATIENT
  Sex: Female
  Weight: 61.363 kg

DRUGS (2)
  1. DETROL LA [Suspect]
     Indication: MICTURITION URGENCY
  2. DETROL LA [Suspect]
     Indication: POLLAKIURIA

REACTIONS (2)
  - DYSURIA [None]
  - VAGINAL HAEMORRHAGE [None]
